FAERS Safety Report 17306505 (Version 1)
Quarter: 2020Q1

REPORT INFORMATION
  Report Type: Spontaneous
  Country: BE (occurrence: BE)
  Receive Date: 20200123
  Receipt Date: 20200123
  Transmission Date: 20200409
  Serious: Yes (Disabling)
  Sender: FDA-Public Use
  Company Number: BE-TEVA-2020-BE-1171901

PATIENT
  Age: 55 Year
  Sex: Male
  Weight: 90 kg

DRUGS (4)
  1. PANTOMED 20 MG [Concomitant]
     Dosage: 1 DOSAGE FORM
  2. SERLAIN 50 MG [Concomitant]
     Dosage: 1 DOSAGE FORM
  3. WELLBUTRIN 300 MG [Concomitant]
     Dosage: 1 DOSAGE FORM
  4. TADALAFIL 20MG [Suspect]
     Active Substance: TADALAFIL
     Indication: ERECTILE DYSFUNCTION
     Dosage: 1 DOSAGE FORM
     Route: 048

REACTIONS (6)
  - Nasal congestion [Recovered/Resolved]
  - Eye pain [Recovered/Resolved]
  - Dizziness [Recovered/Resolved]
  - Sinus congestion [Recovered/Resolved]
  - Headache [Recovered/Resolved]
  - Visual impairment [Recovered/Resolved]
